FAERS Safety Report 9284335 (Version 2)
Quarter: 2014Q1

REPORT INFORMATION
  Report Type: Spontaneous
  Country: US (occurrence: US)
  Receive Date: 20130510
  Receipt Date: 20140312
  Transmission Date: 20141002
  Serious: Yes (Other)
  Sender: FDA-Public Use
  Company Number: CHPA2013US007794

PATIENT
  Age: 64 Year
  Sex: Female

DRUGS (5)
  1. EXCEDRIN EXTRA STRENGTH [Suspect]
     Indication: ASTHENIA
     Dosage: 2-3 DF, QD
     Route: 048
     Dates: end: 2012
  2. EXCEDRIN EXTRA STRENGTH [Suspect]
     Indication: HEADACHE
  3. EXCEDRIN EXTRA STRENGTH [Suspect]
     Indication: ASTHENIA
     Dosage: 2-3 DF, QD
     Route: 048
     Dates: end: 2012
  4. EXCEDRIN EXTRA STRENGTH [Suspect]
     Indication: HEADACHE
  5. EXCEDRIN MIGRAINE [Suspect]
     Dosage: 2 DF, ONCE/SINGLE
     Route: 048
     Dates: start: 2009, end: 2009

REACTIONS (3)
  - Hypertension [Not Recovered/Not Resolved]
  - Asthma [Not Recovered/Not Resolved]
  - Pain [Not Recovered/Not Resolved]
